FAERS Safety Report 19381541 (Version 1)
Quarter: 2021Q2

REPORT INFORMATION
  Report Type: Spontaneous
  Country: US (occurrence: US)
  Receive Date: 20210607
  Receipt Date: 20210607
  Transmission Date: 20210717
  Serious: Yes (Other)
  Sender: FDA-Public Use
  Company Number: US-BAUSCH-BL-2021-019055

PATIENT
  Age: 34 Year
  Sex: Male

DRUGS (3)
  1. TECFIDERA [Concomitant]
     Active Substance: DIMETHYL FUMARATE
     Indication: PRODUCT USED FOR UNKNOWN INDICATION
  2. AMPYRA [Concomitant]
     Active Substance: DALFAMPRIDINE
     Indication: PRODUCT USED FOR UNKNOWN INDICATION
  3. ATIVAN [Suspect]
     Active Substance: LORAZEPAM
     Indication: MOVEMENT DISORDER
     Route: 065

REACTIONS (2)
  - Fall [Unknown]
  - Facial bones fracture [Unknown]
